FAERS Safety Report 6810054-0 (Version None)
Quarter: 2010Q2

REPORT INFORMATION
  Report Type: 
  Country: None (occurrence: None)
  Receive Date: 20100630
  Receipt Date: 20100504
  Transmission Date: 20101027
  Serious: Yes (Other)
  Sender: FDA-Public Use
  Company Number: FR-ROCHE-701429

PATIENT
  Age: 52 Year
  Sex: Female

DRUGS (2)
  1. RIBAVIRIN (NON-ROCHE/NON-COMPARATOR) [Suspect]
     Route: 065
     Dates: start: 19990501, end: 20000201
  2. INTERFERON ALFA-2B [Suspect]
     Dosage: 3 X 3 MU WEEKLY
     Route: 065
     Dates: start: 19990501, end: 20000201

REACTIONS (1)
  - DERMATITIS HERPETIFORMIS [None]
